FAERS Safety Report 4413204-9 (Version None)
Quarter: 2004Q3

REPORT INFORMATION
  Report Type: 
  Country: None (occurrence: None)
  Receive Date: 20040802
  Receipt Date: 20040802
  Transmission Date: 20050211
  Serious: Yes (Hospitalization, Disabling)
  Sender: FDA-Public Use
  Company Number: None

PATIENT
  Age: 40 Year
  Sex: Female
  Weight: 77.1115 kg

DRUGS (2)
  1. SOLU-MEDROL [Suspect]
     Indication: ASTHMA
     Dosage: MASSIVE DO IV
     Route: 042
     Dates: start: 19960115, end: 20000901
  2. PREDNISONE [Suspect]
     Indication: PNEUMONIA
     Dosage: PACK 2 TI ORAL
     Route: 048
     Dates: start: 19960115, end: 20001210

REACTIONS (2)
  - ASEPTIC NECROSIS BONE [None]
  - INTERVERTEBRAL DISC DISORDER [None]
